FAERS Safety Report 23370225 (Version 1)
Quarter: 2024Q1

REPORT INFORMATION
  Report Type: Spontaneous
  Country: GB (occurrence: GB)
  Receive Date: 20240105
  Receipt Date: 20240105
  Transmission Date: 20240410
  Serious: Yes (Other)
  Sender: FDA-Public Use
  Company Number: GB-INCYTE CORPORATION-2023IN013146

PATIENT

DRUGS (3)
  1. CAPECITABINE [Suspect]
     Active Substance: CAPECITABINE
     Indication: Adenocarcinoma of salivary gland
     Dosage: UNKNOWN
     Route: 065
  2. CARBOPLATIN [Suspect]
     Active Substance: CARBOPLATIN
     Indication: Adenocarcinoma of salivary gland
     Dosage: UNKNOWN
     Route: 065
  3. PEMAZYRE [Suspect]
     Active Substance: PEMIGATINIB
     Indication: Adenocarcinoma of salivary gland
     Dosage: 13.5 MILLIGRAM
     Route: 065

REACTIONS (2)
  - Adenocarcinoma of salivary gland [Not Recovered/Not Resolved]
  - Disease progression [Not Recovered/Not Resolved]
